FAERS Safety Report 9014410 (Version 1)
Quarter: 2013Q1

REPORT INFORMATION
  Report Type: Spontaneous
  Country: AR (occurrence: AR)
  Receive Date: 20130115
  Receipt Date: 20130115
  Transmission Date: 20140127
  Serious: Yes (Death, Hospitalization)
  Sender: FDA-Public Use
  Company Number: PHHY2013AR003199

PATIENT
  Sex: Female

DRUGS (1)
  1. EXELON PATCH [Suspect]
     Dosage: 1 DF DAILY
     Route: 062
     Dates: start: 201005

REACTIONS (3)
  - Cardio-respiratory distress [Fatal]
  - Dysphagia [Unknown]
  - Dehydration [Unknown]
